FAERS Safety Report 8638290 (Version 2)
Quarter: 2013Q1

REPORT INFORMATION
  Report Type: Spontaneous
  Country: GB (occurrence: GB)
  Receive Date: 20120627
  Receipt Date: 20130218
  Transmission Date: 20140127
  Serious: Yes (Hospitalization)
  Sender: FDA-Public Use
  Company Number: GB-ROXANE LABORATORIES, INC.-2012-RO-01438RO

PATIENT
  Age: 26 Year
  Sex: Female
  Weight: 59 kg

DRUGS (4)
  1. METHOTREXATE [Suspect]
     Indication: RHEUMATOID ARTHRITIS
  2. HYDROXYCHLOROQUINE [Suspect]
     Indication: RHEUMATOID ARTHRITIS
     Dosage: 400 MG
  3. FOLIC ACID [Suspect]
     Indication: RHEUMATOID ARTHRITIS
  4. GOLIMUMAB [Suspect]
     Indication: RHEUMATOID ARTHRITIS

REACTIONS (4)
  - Hepatic cirrhosis [Unknown]
  - Portal hypertension [Unknown]
  - Hypovolaemic shock [Unknown]
  - Oesophageal varices haemorrhage [Recovered/Resolved]
